FAERS Safety Report 26204549 (Version 1)
Quarter: 2025Q4

REPORT INFORMATION
  Report Type: Spontaneous
  Country: EU (occurrence: None)
  Receive Date: 20251227
  Receipt Date: 20251227
  Transmission Date: 20260119
  Serious: Yes (Death, Other)
  Sender: AUROBINDO
  Company Number: EU-AFSSAPS-AVLY20220292

PATIENT
  Age: 60 Year
  Sex: Male

DRUGS (1)
  1. OXYCODONE [Suspect]
     Active Substance: OXYCODONE
     Indication: Product used for unknown indication
     Dosage: UNK
     Route: 065

REACTIONS (1)
  - Poisoning deliberate [Fatal]
